FAERS Safety Report 20456940 (Version 1)
Quarter: 2022Q1

REPORT INFORMATION
  Report Type: Spontaneous
  Country: US (occurrence: US)
  Receive Date: 20220210
  Receipt Date: 20220210
  Transmission Date: 20220423
  Serious: No
  Sender: FDA-Public Use
  Company Number: US-PERRIGO-21US003777

PATIENT
  Age: 74 Year
  Sex: Female
  Weight: 53.061 kg

DRUGS (3)
  1. CETIRIZINE HYDROCHLORIDE [Suspect]
     Active Substance: CETIRIZINE HYDROCHLORIDE
     Indication: Rhinorrhoea
     Dosage: 10 MG, SINGLE
     Route: 048
     Dates: start: 20210312, end: 20210312
  2. CETIRIZINE HYDROCHLORIDE [Suspect]
     Active Substance: CETIRIZINE HYDROCHLORIDE
     Indication: Eye pruritus
  3. MELATONIN [Concomitant]
     Active Substance: MELATONIN
     Indication: Insomnia
     Dosage: UNKNOWN, UNKNOWN
     Route: 065
     Dates: start: 202101

REACTIONS (9)
  - Fatigue [Recovered/Resolved]
  - Condition aggravated [Recovered/Resolved]
  - Dry mouth [Recovered/Resolved]
  - Dry eye [Recovered/Resolved]
  - Nasal dryness [Recovered/Resolved]
  - Thirst [Recovered/Resolved]
  - Dizziness [Recovered/Resolved]
  - Somnolence [Recovered/Resolved]
  - Product administered to patient of inappropriate age [Recovered/Resolved]

NARRATIVE: CASE EVENT DATE: 20210301
